FAERS Safety Report 22335788 (Version 2)
Quarter: 2023Q2

REPORT INFORMATION
  Report Type: Report from Study
  Country: US (occurrence: None)
  Receive Date: 20230518
  Receipt Date: 20230524
  Transmission Date: 20230721
  Serious: Yes (Hospitalization, Other)
  Sender: FDA-Public Use
  Company Number: US-ROCHE-3350969

PATIENT
  Age: 53 Year
  Sex: Male
  Weight: 85.4 kg

DRUGS (7)
  1. VENETOCLAX [Suspect]
     Active Substance: VENETOCLAX
     Indication: Chronic lymphocytic leukaemia
     Dosage: DAYS 1-7 CYCLE 3, LAST DOSE ON 2/FEB/2021
     Route: 048
     Dates: start: 20200109
  2. VENETOCLAX [Suspect]
     Active Substance: VENETOCLAX
     Dosage: 8-14, CYCLE 3
     Route: 048
  3. VENETOCLAX [Suspect]
     Active Substance: VENETOCLAX
     Dosage: 15-21, CYCLE 3
     Route: 048
  4. VENETOCLAX [Suspect]
     Active Substance: VENETOCLAX
     Dosage: 22-28, CYCLE 3
     Route: 048
  5. VENETOCLAX [Suspect]
     Active Substance: VENETOCLAX
     Dosage: 1-28, CYCLES 4-14
     Route: 048
  6. OBINUTUZUMAB [Suspect]
     Active Substance: OBINUTUZUMAB
     Indication: Chronic lymphocytic leukaemia
     Dosage: LAST DOSE ON 18/MAY/2020, NEXT DOSES ON DAYS 900MG ON DAY 2, 1000 MG IV ON DAY 8, CYCLE 1,  1000 MG
     Route: 042
     Dates: start: 20200109
  7. IBRUTINIB [Suspect]
     Active Substance: IBRUTINIB
     Indication: Chronic lymphocytic leukaemia
     Dosage: DAYS 1-28, CYCLES 1-19, LAST DOSE ADMINISTERED ON 08-SEP-2020
     Route: 048
     Dates: start: 20200109, end: 20200910

REACTIONS (6)
  - Anaemia [Recovered/Resolved]
  - Atrial fibrillation [Recovered/Resolved]
  - Pneumonia [Not Recovered/Not Resolved]
  - Lymphocyte count decreased [Recovered/Resolved]
  - Pyrexia [Recovered/Resolved]
  - Sepsis [Not Recovered/Not Resolved]

NARRATIVE: CASE EVENT DATE: 20210319
